FAERS Safety Report 4311162-9 (Version None)
Quarter: 2004Q1

REPORT INFORMATION
  Report Type: 
  Country: None (occurrence: None)
  Receive Date: 20040302
  Receipt Date: 20040218
  Transmission Date: 20041129
  Serious: Yes (Hospitalization)
  Sender: FDA-Public Use
  Company Number: 2004UW02856

PATIENT
  Age: 53 Year
  Sex: Female
  Weight: 117.028 kg

DRUGS (1)
  1. ELAVIL [Suspect]
     Indication: DIABETIC NEUROPATHY
     Dosage: 25 MG BID PO
     Route: 048
     Dates: start: 20030523

REACTIONS (1)
  - BRONCHITIS [None]
